FAERS Safety Report 20814029 (Version 1)
Quarter: 2022Q2

REPORT INFORMATION
  Report Type: Spontaneous
  Country: US (occurrence: None)
  Receive Date: 20220510
  Receipt Date: 20220510
  Transmission Date: 20220721
  Serious: Yes (Other)
  Sender: FDA-Public Use
  Company Number: None

PATIENT
  Age: 45 Year
  Sex: Female
  Weight: 66.15 kg

DRUGS (9)
  1. SUBLOCADE [Suspect]
     Active Substance: BUPRENORPHINE
     Indication: Drug use disorder
     Dosage: OTHER FREQUENCY : MONTHLY;?
     Route: 058
     Dates: start: 20220121
  2. CARIPRAZINE [Concomitant]
     Active Substance: CARIPRAZINE
     Dates: start: 20211116
  3. FISH OIL [Concomitant]
     Active Substance: FISH OIL
     Dates: start: 20211116
  4. LEVOTHYROXINE [Concomitant]
     Active Substance: LEVOTHYROXINE
     Dates: start: 20211116
  5. MAVYRET [Concomitant]
     Active Substance: GLECAPREVIR\PIBRENTASVIR
     Dates: start: 20220301
  6. CLONIDINE [Concomitant]
     Active Substance: CLONIDINE
     Dates: start: 20211116
  7. CYANOCOBALAMIN [Concomitant]
     Active Substance: CYANOCOBALAMIN
     Dates: start: 20211116
  8. gapabentin [Concomitant]
     Dates: start: 20211116
  9. nicotine gum/patch [Concomitant]
     Dates: start: 20211116

REACTIONS (2)
  - Injection site mass [None]
  - Drug ineffective [None]

NARRATIVE: CASE EVENT DATE: 20220309
